FAERS Safety Report 8213998-0 (Version None)
Quarter: 2012Q1

REPORT INFORMATION
  Report Type: 
  Country: None (occurrence: None)
  Receive Date: 20120316
  Receipt Date: 20120313
  Transmission Date: 20120608
  Serious: No
  Sender: FDA-Public Use
  Company Number: US-PFIZER INC-2012037199

PATIENT
  Sex: Female

DRUGS (10)
  1. CHANTIX [Suspect]
     Indication: SMOKING CESSATION THERAPY
     Dosage: 0.5 MG, 1X/DAY
     Route: 048
     Dates: start: 20120209
  2. FISH OIL [Concomitant]
     Dosage: UNK
  3. FOSTEX [Concomitant]
     Dosage: UNK
  4. CARDIZEM [Concomitant]
     Dosage: 120 MG, UNK
  5. ASPIRIN [Concomitant]
     Dosage: 81 MG, 1X/DAY
  6. VITAMIN E [Concomitant]
     Dosage: UNK
  7. CELEBREX [Concomitant]
     Dosage: UNK
  8. VITAMIN D [Concomitant]
     Dosage: UNK
  9. COQ10 [Concomitant]
     Dosage: 50 MG, 1X/DAY
  10. NEXIUM [Concomitant]
     Dosage: UNK

REACTIONS (5)
  - OROPHARYNGEAL PAIN [None]
  - CHILLS [None]
  - NASOPHARYNGITIS [None]
  - DYSPHAGIA [None]
  - GASTROENTERITIS VIRAL [None]
